FAERS Safety Report 11179421 (Version 2)
Quarter: 2015Q3

REPORT INFORMATION
  Report Type: Report from Study
  Country: US (occurrence: US)
  Receive Date: 20150611
  Receipt Date: 20150806
  Transmission Date: 20151125
  Serious: Yes (Hospitalization)
  Sender: FDA-Public Use
  Company Number: PHEH2015US010854

PATIENT
  Sex: Female

DRUGS (3)
  1. SANDOSTATIN [Suspect]
     Active Substance: OCTREOTIDE ACETATE
     Indication: CARCINOID TUMOUR
     Dosage: UNK
     Route: 058
  2. OCTREOTIDE. [Suspect]
     Active Substance: OCTREOTIDE
     Indication: CARCINOID TUMOUR
     Dosage: UNK UNK, TID
     Route: 058
     Dates: start: 2011
  3. SANDOSTATIN LAR DEPOT [Suspect]
     Active Substance: OCTREOTIDE ACETATE
     Indication: CARCINOID TUMOUR
     Dosage: UNK
     Route: 030

REACTIONS (17)
  - Hypertension [Recovered/Resolved]
  - Intestinal obstruction [Recovering/Resolving]
  - Constipation [Recovering/Resolving]
  - Abdominal distension [Recovering/Resolving]
  - Injection site mass [Unknown]
  - Dysarthria [Recovered/Resolved]
  - Gastrointestinal hypomotility [Unknown]
  - Lacrimation increased [Unknown]
  - Dyspepsia [Unknown]
  - Weight decreased [Unknown]
  - Diarrhoea [Unknown]
  - Feeling hot [Unknown]
  - Injection site pain [Unknown]
  - Burning sensation [Unknown]
  - Injection site erythema [Unknown]
  - Drug ineffective [Unknown]
  - Volvulus [Unknown]

NARRATIVE: CASE EVENT DATE: 2013
